FAERS Safety Report 12912679 (Version 2)
Quarter: 2017Q1

REPORT INFORMATION
  Report Type: Spontaneous
  Country: US (occurrence: US)
  Receive Date: 20161104
  Receipt Date: 20170307
  Transmission Date: 20170428
  Serious: No
  Sender: FDA-Public Use
  Company Number: US-009507513-1611USA002200

PATIENT
  Sex: Male

DRUGS (2)
  1. ZOCOR [Suspect]
     Active Substance: SIMVASTATIN
     Indication: LIPIDS
     Dosage: 80 (UNITS NOT PROVIDED), QD
     Route: 048
  2. PRAVASTATIN. [Suspect]
     Active Substance: PRAVASTATIN
     Dosage: 80 UNK UNK

REACTIONS (3)
  - Drug hypersensitivity [Unknown]
  - Liver function test increased [Recovered/Resolved]
  - Adverse event [Unknown]

NARRATIVE: CASE EVENT DATE: 2010
